FAERS Safety Report 5801396-6 (Version None)
Quarter: 2008Q3

REPORT INFORMATION
  Report Type: 
  Country: None (occurrence: None)
  Receive Date: 20080707
  Receipt Date: 20080702
  Transmission Date: 20090109
  Serious: Yes (Other)
  Sender: FDA-Public Use
  Company Number: US-ASTRAZENECA-2008UW13210

PATIENT
  Sex: Male

DRUGS (12)
  1. SEROQUEL [Suspect]
     Indication: DEPRESSION
     Route: 048
     Dates: start: 20030101, end: 20070101
  2. SEROQUEL [Suspect]
     Indication: ANXIETY
     Route: 048
     Dates: start: 20030101, end: 20070101
  3. XANAX [Suspect]
     Indication: DEPRESSION
     Dates: start: 20030101, end: 20070101
  4. XANAX [Suspect]
     Indication: ANXIETY
     Dates: start: 20030101, end: 20070101
  5. WELLBUTRIN [Suspect]
     Indication: DEPRESSION
     Dates: start: 20030101, end: 20070101
  6. WELLBUTRIN [Suspect]
     Indication: ANXIETY
     Dates: start: 20030101, end: 20070101
  7. LEXAPRO [Suspect]
     Indication: DEPRESSION
     Dates: start: 20030101, end: 20070101
  8. LEXAPRO [Suspect]
     Indication: ANXIETY
     Dates: start: 20030101, end: 20070101
  9. RESTORIL [Suspect]
     Indication: DEPRESSION
     Dates: start: 20030101, end: 20070101
  10. RESTORIL [Suspect]
     Indication: ANXIETY
     Dates: start: 20030101, end: 20070101
  11. CYMBALTA [Suspect]
     Indication: DEPRESSION
     Dates: start: 20030101, end: 20070101
  12. CYMBALTA [Suspect]
     Indication: ANXIETY
     Dates: start: 20030101, end: 20070101

REACTIONS (29)
  - ACTIVITIES OF DAILY LIVING IMPAIRED [None]
  - ANXIETY [None]
  - BLOOD CHOLESTEROL ABNORMAL [None]
  - BLOOD TRIGLYCERIDES ABNORMAL [None]
  - BRUXISM [None]
  - CONVULSION [None]
  - DEPRESSION [None]
  - DISORIENTATION [None]
  - DISSOCIATIVE DISORDER [None]
  - HALLUCINATION [None]
  - HEADACHE [None]
  - HYPERHIDROSIS [None]
  - HYPERTENSION [None]
  - INSOMNIA [None]
  - MENTAL DISORDER [None]
  - NIGHTMARE [None]
  - OVERDOSE [None]
  - PAIN [None]
  - RENAL FAILURE [None]
  - ROAD TRAFFIC ACCIDENT [None]
  - SCREAMING [None]
  - SLEEP APNOEA SYNDROME [None]
  - STRESS [None]
  - SUICIDAL IDEATION [None]
  - SUICIDE ATTEMPT [None]
  - TARDIVE DYSKINESIA [None]
  - THYROID DISORDER [None]
  - TREATMENT NONCOMPLIANCE [None]
  - WEIGHT DECREASED [None]
